FAERS Safety Report 7347938-3 (Version None)
Quarter: 2011Q1

REPORT INFORMATION
  Report Type: 
  Country: None (occurrence: None)
  Receive Date: 20110311
  Receipt Date: 20110310
  Transmission Date: 20110831
  Serious: Yes (Life-Threatening, Other)
  Sender: FDA-Public Use
  Company Number: CHPA2011GB02954

PATIENT
  Sex: Female

DRUGS (2)
  1. NICOTINELL TTS 30 [Suspect]
     Indication: SMOKING CESSATION THERAPY
     Dosage: 1 DF, QD
     Route: 062
     Dates: start: 20110120, end: 20110213
  2. LEVOTHYROXINE [Concomitant]
     Indication: THYROID DISORDER
     Dosage: UNK, UNK
     Route: 065

REACTIONS (5)
  - DYSPNOEA [None]
  - ASTHENIA [None]
  - CHEST PAIN [None]
  - HYPERSENSITIVITY [None]
  - FATIGUE [None]
